FAERS Safety Report 6599273-9 (Version None)
Quarter: 2010Q1

REPORT INFORMATION
  Report Type: 
  Country: None (occurrence: None)
  Receive Date: 20100224
  Receipt Date: 20100222
  Transmission Date: 20100710
  Serious: Yes (Death)
  Sender: FDA-Public Use
  Company Number: PHEH2009US18908

PATIENT
  Sex: Male

DRUGS (3)
  1. EXJADE [Suspect]
     Dosage: 2000, DAILY
     Route: 048
  2. EXJADE [Suspect]
     Dosage: UNK
  3. CHEMOTHERAPEUTICS NOS [Concomitant]

REACTIONS (2)
  - ABDOMINAL PAIN [None]
  - DEATH [None]
